FAERS Safety Report 4432491-4 (Version None)
Quarter: 2004Q3

REPORT INFORMATION
  Report Type: 
  Country: None (occurrence: None)
  Receive Date: 20040820
  Receipt Date: 20040809
  Transmission Date: 20050211
  Serious: Yes (Death)
  Sender: FDA-Public Use
  Company Number: 2003US005643

PATIENT
  Sex: Female

DRUGS (2)
  1. PROGRAF [Suspect]
     Indication: LIVER TRANSPLANT
  2. FLUCONAZOLE [Concomitant]

REACTIONS (3)
  - BACTERIAL SEPSIS [None]
  - DRUG TOXICITY [None]
  - MEDICATION ERROR [None]
